FAERS Safety Report 10347939 (Version 1)
Quarter: 2014Q3

REPORT INFORMATION
  Report Type: Spontaneous
  Country: BE (occurrence: BE)
  Receive Date: 20140729
  Receipt Date: 20140729
  Transmission Date: 20150326
  Serious: Yes (Other)
  Sender: FDA-Public Use
  Company Number: BE-ROXANE LABORATORIES, INC.-2014-RO-01119RO

PATIENT
  Age: 37 Year
  Sex: Male

DRUGS (5)
  1. METHOTREXATE [Concomitant]
     Active Substance: METHOTREXATE
     Indication: COLITIS ULCERATIVE
     Route: 065
  2. AZATHIOPRINE. [Suspect]
     Active Substance: AZATHIOPRINE
     Route: 065
     Dates: start: 2007
  3. ALLOPURINOL. [Suspect]
     Active Substance: ALLOPURINOL
     Indication: GOUT
     Route: 065
     Dates: start: 2005
  4. MESALAZINE [Concomitant]
     Active Substance: MESALAMINE
     Indication: COLITIS ULCERATIVE
     Route: 065
  5. AZATHIOPRINE. [Suspect]
     Active Substance: AZATHIOPRINE
     Indication: COLITIS
     Route: 065
     Dates: start: 2005

REACTIONS (4)
  - Pancytopenia [Unknown]
  - Hepatic cirrhosis [Unknown]
  - Portal hypertension [Unknown]
  - Nodular regenerative hyperplasia [Unknown]

NARRATIVE: CASE EVENT DATE: 200512
